FAERS Safety Report 6924331-6 (Version None)
Quarter: 2010Q3

REPORT INFORMATION
  Report Type: 
  Country: None (occurrence: None)
  Receive Date: 20100811
  Receipt Date: 20100811
  Transmission Date: 20110219
  Serious: Yes (Life-Threatening, Disabling, Other)
  Sender: FDA-Public Use
  Company Number: None

PATIENT
  Age: 86 Year
  Sex: Male
  Weight: 93.8946 kg

DRUGS (1)
  1. PACERONE [Suspect]
     Indication: CARDIOVERSION
     Dosage: 200MG 1 EACH DAY OTHER
     Dates: start: 20080820, end: 20100218

REACTIONS (4)
  - DECREASED APPETITE [None]
  - THYROID DISORDER [None]
  - TREATMENT FAILURE [None]
  - WEIGHT DECREASED [None]
